FAERS Safety Report 10753038 (Version 1)
Quarter: 2015Q1

REPORT INFORMATION
  Report Type: Spontaneous
  Country: US (occurrence: US)
  Receive Date: 20150130
  Receipt Date: 20150130
  Transmission Date: 20150721
  Serious: No
  Sender: FDA-Public Use
  Company Number: CA-ASTRAZENECA-2014SE14601

PATIENT
  Age: 61 Year
  Sex: Female

DRUGS (1)
  1. LISINOPRIL-HYDROCHLOROTHIAZIDE [Suspect]
     Active Substance: HYDROCHLOROTHIAZIDE\LISINOPRIL
     Route: 048

REACTIONS (3)
  - Retching [Unknown]
  - Cough [Unknown]
  - Dry mouth [Unknown]
